FAERS Safety Report 4886594-0 (Version None)
Quarter: 2005Q4

REPORT INFORMATION
  Report Type: 
  Country: None (occurrence: None)
  Receive Date: 20051220
  Receipt Date: 20050503
  Transmission Date: 20060501
  Serious: Yes (Other)
  Sender: FDA-Public Use
  Company Number: HQWYE557005MAY05

PATIENT
  Age: 44 Year
  Sex: Female
  Weight: 83.99 kg

DRUGS (6)
  1. EFFEXOR XR [Suspect]
     Indication: HOT FLUSH
     Dosage: SEE IMAGE
     Route: 048
     Dates: start: 20040226, end: 20041103
  2. EFFEXOR XR [Suspect]
     Indication: HOT FLUSH
     Dosage: SEE IMAGE
     Route: 048
     Dates: start: 20041104, end: 20050410
  3. EFFEXOR XR [Suspect]
     Indication: HOT FLUSH
     Dosage: SEE IMAGE
     Route: 048
     Dates: start: 20050419, end: 20050601
  4. CELEBREX [Concomitant]
  5. OMEGA 3 (FISH OIL) [Concomitant]
  6. ZYRTEC [Concomitant]

REACTIONS (3)
  - BLOOD PRESSURE INCREASED [None]
  - CHEST PAIN [None]
  - DRUG INEFFECTIVE FOR UNAPPROVED INDICATION [None]
